FAERS Safety Report 21480167 (Version 1)
Quarter: 2022Q4

REPORT INFORMATION
  Report Type: Spontaneous
  Country: US (occurrence: US)
  Receive Date: 20221019
  Receipt Date: 20221019
  Transmission Date: 20230113
  Serious: No
  Sender: FDA-Public Use
  Company Number: US-SA-SAC20221013001851

PATIENT
  Sex: Female

DRUGS (1)
  1. DUPIXENT [Suspect]
     Active Substance: DUPILUMAB
     Dosage: 300 MG FREQUENCY: OTHER
     Route: 058

REACTIONS (5)
  - Rhinorrhoea [Unknown]
  - Sinus headache [Unknown]
  - Heavy menstrual bleeding [Unknown]
  - Pruritus [Unknown]
  - Dry eye [Not Recovered/Not Resolved]
